FAERS Safety Report 9661153 (Version 1)
Quarter: 2013Q4

REPORT INFORMATION
  Report Type: Spontaneous
  Country: US (occurrence: None)
  Receive Date: 20131030
  Receipt Date: 20131030
  Transmission Date: 20140711
  Serious: Yes (Death)
  Sender: FDA-Public Use
  Company Number: SYM-2013-12064

PATIENT
  Age: 79 Year
  Sex: Female

DRUGS (1)
  1. XENAZINE [Suspect]
     Indication: TARDIVE DYSKINESIA
     Dosage: ORAL, UNKNOWN-UNKNOWN
     Route: 048

REACTIONS (1)
  - Death [None]
